FAERS Safety Report 5650202-1 (Version None)
Quarter: 2008Q1

REPORT INFORMATION
  Report Type: 
  Country: None (occurrence: None)
  Receive Date: 20080131
  Receipt Date: 20071213
  Transmission Date: 20080703
  Serious: No
  Sender: FDA-Public Use
  Company Number: US200712002918

PATIENT
  Age: 69 Year
  Sex: Male
  Weight: 108.8 kg

DRUGS (9)
  1. BYETTA [Suspect]
     Indication: TYPE 2 DIABETES MELLITUS
     Dosage: 5 UG, 2/D, SUBCUTANEOUS ; 10 UG, 2/D, SUBCUTANEUOS
     Route: 058
     Dates: start: 20050101, end: 20050101
  2. BYETTA [Suspect]
     Indication: TYPE 2 DIABETES MELLITUS
     Dosage: 5 UG, 2/D, SUBCUTANEOUS ; 10 UG, 2/D, SUBCUTANEUOS
     Route: 058
     Dates: start: 20050101, end: 20071212
  3. GLIPIZIDE [Concomitant]
  4. AVANDIA [Concomitant]
  5. COZAAR [Concomitant]
  6. PRECOSE [Concomitant]
  7. PROSCAR [Concomitant]
  8. GERITOL COMPLETE (FOLIC ACID, IRON, MINERALS NOS, VITAMINS NOS) [Concomitant]
  9. IRON (IRON) [Concomitant]

REACTIONS (4)
  - ABDOMINAL DISCOMFORT [None]
  - ABDOMINAL DISTENSION [None]
  - BLOOD GLUCOSE DECREASED [None]
  - BLOOD GLUCOSE INCREASED [None]
